FAERS Safety Report 12368592 (Version 1)
Quarter: 2016Q2

REPORT INFORMATION
  Report Type: Spontaneous
  Country: US (occurrence: US)
  Receive Date: 20160513
  Receipt Date: 20160513
  Transmission Date: 20160815
  Serious: No
  Sender: FDA-Public Use
  Company Number: US-JNJFOC-20160413758

PATIENT
  Age: 48 Year
  Sex: Female
  Weight: 57.15 kg

DRUGS (2)
  1. WOMENS ROGAINE [Suspect]
     Active Substance: MINOXIDIL
     Indication: ALOPECIA
     Dosage: SMALL DROP, ONCE
     Route: 061
  2. WOMENS ROGAINE [Suspect]
     Active Substance: MINOXIDIL
     Route: 061

REACTIONS (3)
  - Erythema [Recovered/Resolved]
  - Accidental exposure to product [Not Recovered/Not Resolved]
  - Swelling face [Not Recovered/Not Resolved]
